FAERS Safety Report 23577251 (Version 2)
Quarter: 2024Q1

REPORT INFORMATION
  Report Type: Spontaneous
  Country: US (occurrence: US)
  Receive Date: 20240228
  Receipt Date: 20240308
  Transmission Date: 20240410
  Serious: No
  Sender: FDA-Public Use
  Company Number: US-VERTEX PHARMACEUTICALS-2024-003097

PATIENT
  Age: 2 Year
  Sex: Male
  Weight: 17 kg

DRUGS (3)
  1. TRIKAFTA [Suspect]
     Active Substance: ELEXACAFTOR\IVACAFTOR\TEZACAFTOR
     Indication: Cystic fibrosis
     Dosage: 1 ORANGE PACKET IN AM AND 1 PINK PACKET IN PM
     Route: 048
     Dates: start: 20230710
  2. TRIKAFTA [Suspect]
     Active Substance: ELEXACAFTOR\IVACAFTOR\TEZACAFTOR
     Dosage: SWITCHED DOSES: AM TO PM AND PM TO AM
     Route: 048
  3. TRIKAFTA [Suspect]
     Active Substance: ELEXACAFTOR\IVACAFTOR\TEZACAFTOR
     Dosage: BACK TO NORMAL - 1 ORANGE PACKET IN AM AND 1 PINK PACKET IN PM
     Route: 048

REACTIONS (4)
  - Aggression [Not Recovered/Not Resolved]
  - Screaming [Not Recovered/Not Resolved]
  - Sleep disorder [Unknown]
  - Defiant behaviour [Not Recovered/Not Resolved]

NARRATIVE: CASE EVENT DATE: 20231231
